FAERS Safety Report 18876380 (Version 1)
Quarter: 2021Q1

REPORT INFORMATION
  Report Type: Report from Study
  Country: CA (occurrence: CA)
  Receive Date: 20210211
  Receipt Date: 20210211
  Transmission Date: 20210420
  Serious: Yes (Hospitalization, Other)
  Sender: FDA-Public Use
  Company Number: CA-BRISTOL-MYERS SQUIBB COMPANY-BMS-2020-080320

PATIENT
  Age: 71 Year
  Sex: Female

DRUGS (1)
  1. ABATACEPT [Suspect]
     Active Substance: ABATACEPT
     Indication: RHEUMATOID ARTHRITIS
     Dosage: 750 MILLIGRAM, Q4WK
     Route: 042
     Dates: start: 20100407

REACTIONS (7)
  - Impaired healing [Unknown]
  - Peripheral swelling [Unknown]
  - Arthropathy [Not Recovered/Not Resolved]
  - Blood pressure fluctuation [Unknown]
  - Sepsis [Recovering/Resolving]
  - Herpes zoster [Unknown]
  - Limb injury [Unknown]

NARRATIVE: CASE EVENT DATE: 20200907
